FAERS Safety Report 5063846-5 (Version None)
Quarter: 2006Q3

REPORT INFORMATION
  Report Type: 
  Country: None (occurrence: None)
  Receive Date: 20060726
  Receipt Date: 20060726
  Transmission Date: 20061208
  Serious: Yes (Hospitalization)
  Sender: FDA-Public Use
  Company Number: None

PATIENT
  Age: 49 Year
  Sex: Female
  Weight: 95.2554 kg

DRUGS (6)
  1. EPIRUBICIN [Suspect]
     Indication: BREAST CANCER
     Dosage: 90MG/M2 EVERY 3 WEEKS IV BOLUS
     Route: 040
     Dates: start: 20060706, end: 20060706
  2. CYCLOPHOSPHAMIDE [Suspect]
     Indication: BREAST CANCER
     Dosage: 600MG/M2 EVERY 3 WEEKS IV DRIP
     Route: 041
     Dates: start: 20060706, end: 20060706
  3. DEXAMETHASONE TAB [Concomitant]
  4. LORAZEPAM [Concomitant]
  5. COMPAZINE [Concomitant]
  6. ZOFRAN [Concomitant]

REACTIONS (2)
  - DIVERTICULITIS [None]
  - FEBRILE NEUTROPENIA [None]
